FAERS Safety Report 9705842 (Version 3)
Quarter: 2015Q3

REPORT INFORMATION
  Report Type: Spontaneous
  Country: US (occurrence: US)
  Receive Date: 20131122
  Receipt Date: 20150803
  Transmission Date: 20151125
  Serious: No
  Sender: FDA-Public Use
  Company Number: US-GILEAD-2008-0017906

PATIENT
  Age: 74 Year
  Sex: Female
  Weight: 86.18 kg

DRUGS (7)
  1. COUMADIN [Concomitant]
     Active Substance: WARFARIN SODIUM
     Dosage: AS DIRECTED
     Route: 048
  2. LETAIRIS [Suspect]
     Active Substance: AMBRISENTAN
     Indication: PULMONARY ARTERIAL HYPERTENSION
     Route: 048
     Dates: start: 20080801
  3. LASIX [Concomitant]
     Active Substance: FUROSEMIDE
     Dosage: AS DIRECTED
     Route: 048
  4. REVATIO [Concomitant]
     Active Substance: SILDENAFIL CITRATE
     Dosage: AS DIRECTED
     Route: 048
  5. SPIRONOLACTONE. [Concomitant]
     Active Substance: SPIRONOLACTONE
     Dosage: AS DIRECTED
     Route: 048
  6. VASOTEC [Concomitant]
     Active Substance: ENALAPRIL MALEATE
     Dosage: AS DIRECTED
     Route: 048
  7. TENORMIN [Concomitant]
     Active Substance: ATENOLOL
     Dosage: AS DIRECTED
     Route: 048

REACTIONS (1)
  - Dizziness [Recovered/Resolved]
